FAERS Safety Report 6578482-9 (Version None)
Quarter: 2010Q1

REPORT INFORMATION
  Report Type: 
  Country: None (occurrence: None)
  Receive Date: 20100211
  Receipt Date: 20100129
  Transmission Date: 20100710
  Serious: Yes (Disabling, Other)
  Sender: FDA-Public Use
  Company Number: PHHY2009JP48683

PATIENT
  Sex: Male
  Weight: 54 kg

DRUGS (17)
  1. ZOMETA [Suspect]
     Indication: METASTASES TO BONE
     Dosage: 4MG (PER ADMINISTRATION)
     Route: 042
     Dates: start: 20090813, end: 20091015
  2. VOLTAREN [Suspect]
     Dosage: 50 MG/DAY
     Route: 048
     Dates: start: 20090722, end: 20091105
  3. NSAID'S [Suspect]
  4. CHLORMADINONE ACETATE TAB [Concomitant]
     Indication: PROSTATE CANCER
     Dosage: 50 MG, UNK
     Route: 048
     Dates: start: 20090702
  5. TAMSULOSIN HYDROCHLORIDE [Concomitant]
     Dosage: 0.2 MG, UNK
     Route: 048
     Dates: start: 20090702
  6. FUROSEMIDE [Concomitant]
     Dosage: 10 MG, UNK
     Route: 048
     Dates: start: 20090712
  7. OMEPRAZOLE [Concomitant]
     Dosage: 20 MG, UNK
     Route: 048
     Dates: start: 20090922
  8. SENNOSIDE [Concomitant]
     Indication: CONSTIPATION
     Dosage: 24 MG, UNK
     Route: 048
     Dates: start: 20090709
  9. ALOSENN [Concomitant]
     Indication: CONSTIPATION
     Dosage: 0.5 MG, UNK
     Route: 048
     Dates: start: 20090825
  10. LAC B [Concomitant]
     Dosage: 3 G, UNK
     Route: 048
     Dates: start: 20090722
  11. TEPRENONE [Concomitant]
     Dosage: 150 MG, UNK
     Route: 048
     Dates: start: 20090715, end: 20100107
  12. ALLELOCK [Concomitant]
     Indication: RASH
     Dosage: 10 MG, UNK
     Route: 048
     Dates: start: 20090813
  13. EPINASTINE HYDROCHLORIDE [Concomitant]
     Indication: RASH
     Dosage: 20 MG, UNK
     Route: 048
     Dates: start: 20090917
  14. EPINASTINE HYDROCHLORIDE [Concomitant]
     Dosage: 20 MG, UNK
     Route: 048
  15. HYDROXYZINE [Concomitant]
     Indication: RASH
     Dosage: 10 MG, UNK
     Route: 048
     Dates: start: 20091119
  16. CALCIUM POLYSTYRENE SULFONATE [Concomitant]
     Dosage: 1 UNIT FOR 1 DOSE
  17. CALCIUM POLYSTYRENE SULFONATE [Concomitant]
     Dosage: 2 U, UNK
     Dates: start: 20091107, end: 20091204

REACTIONS (4)
  - BLOOD CREATININE INCREASED [None]
  - BLOOD POTASSIUM INCREASED [None]
  - BLOOD UREA INCREASED [None]
  - RENAL IMPAIRMENT [None]
